FAERS Safety Report 7430553-0 (Version None)
Quarter: 2011Q2

REPORT INFORMATION
  Report Type: 
  Country: None (occurrence: None)
  Receive Date: 20110421
  Receipt Date: 20100402
  Transmission Date: 20111010
  Serious: No
  Sender: FDA-Public Use
  Company Number: US-ASTRAZENECA-2010SE14752

PATIENT
  Age: 68 Year
  Sex: Male
  Weight: 86.2 kg

DRUGS (9)
  1. FLONASE [Concomitant]
     Indication: HYPERSENSITIVITY
  2. MICARDIS HCT [Concomitant]
     Indication: HYPERTENSION
  3. TOPROL-XL [Suspect]
     Route: 048
     Dates: start: 20081001, end: 20091108
  4. TOPROL-XL [Suspect]
     Route: 048
     Dates: start: 20091109, end: 20100303
  5. POTASSIUM [Concomitant]
     Indication: HYPOKALAEMIA
  6. ZYRTEC [Concomitant]
     Indication: HYPERSENSITIVITY
  7. NEXIUM [Concomitant]
     Indication: GASTROOESOPHAGEAL REFLUX DISEASE
  8. KLONOPIN [Concomitant]
     Indication: POST-TRAUMATIC STRESS DISORDER
  9. BENAGLYDE [Concomitant]
     Indication: BLOOD CHOLESTEROL INCREASED

REACTIONS (2)
  - INCORRECT DOSE ADMINISTERED [None]
  - SYNCOPE [None]
